FAERS Safety Report 9045272 (Version 1)
Quarter: 2013Q1

REPORT INFORMATION
  Report Type: Report from Study
  Country: US (occurrence: US)
  Receive Date: 20130131
  Receipt Date: 20130131
  Transmission Date: 20140127
  Serious: No
  Sender: FDA-Public Use
  Company Number: US-ABBOTT-12P-163-0955271-00

PATIENT
  Age: 36 None
  Sex: Female
  Weight: 60.38 kg

DRUGS (1)
  1. HUMIRA 40 MG/0.8 ML PEN [Suspect]
     Indication: RHEUMATOID ARTHRITIS
     Route: 058

REACTIONS (4)
  - Mammoplasty [Recovering/Resolving]
  - Injection site bruising [Recovering/Resolving]
  - Device malfunction [Unknown]
  - Breast prosthesis implantation [Recovering/Resolving]
